FAERS Safety Report 6642403-0 (Version None)
Quarter: 2010Q1

REPORT INFORMATION
  Report Type: 
  Country: None (occurrence: None)
  Receive Date: 20100316
  Receipt Date: 20100312
  Transmission Date: 20100710
  Serious: Yes (Death, Hospitalization)
  Sender: FDA-Public Use
  Company Number: 2010SP009710

PATIENT
  Age: 78 Year
  Sex: Female
  Weight: 51.2565 kg

DRUGS (28)
  1. TEMOZOLOMIDE [Suspect]
     Indication: GLIOBLASTOMA MULTIFORME
     Dosage: 215 MG;QD;PO
     Route: 048
     Dates: start: 20091118, end: 20100204
  2. TEMOZOLOMIDE [Suspect]
  3. TEMOZOLOMIDE [Suspect]
     Dosage: 5 MG
     Dates: start: 20100401
  4. TEMOZOLOMIDE [Suspect]
     Dosage: 100 MG
  5. AMBIEN [Concomitant]
  6. COLACE [Concomitant]
  7. DECADRON [Concomitant]
  8. MEGACE [Concomitant]
  9. OMEPRAZOLE [Concomitant]
  10. ONDANSETRON HCL [Concomitant]
  11. SENOKOT [Concomitant]
  12. TRAZODONE [Concomitant]
  13. BACTRIM DS [Concomitant]
  14. ZOFRAN [Concomitant]
  15. DALTEPARIN [Concomitant]
  16. MEGESTROL ACETATE [Concomitant]
  17. CEFTRIAXONE [Concomitant]
  18. VANCOMYCIN HCL [Concomitant]
  19. METRONIDAZOLE [Concomitant]
  20. LEVOFLOXACIN [Concomitant]
  21. ACETAMINOPHEN [Concomitant]
  22. DULCOLAX [Concomitant]
  23. HYDROCHLORIDE [Concomitant]
  24. ROXANOL [Concomitant]
  25. VICODIN [Concomitant]
  26. MAGNESIUM HYDROXIDE TAB [Concomitant]
  27. COMPAZINE [Concomitant]
  28. DIPHENHYDRAMINE HYDROCHLORIDE [Concomitant]

REACTIONS (13)
  - ASTHENIA [None]
  - DECREASED APPETITE [None]
  - FAILURE TO THRIVE [None]
  - FATIGUE [None]
  - HYPOCALCAEMIA [None]
  - HYPONATRAEMIA [None]
  - HYPOPHAGIA [None]
  - HYPOPHOSPHATAEMIA [None]
  - HYPOTENSION [None]
  - LETHARGY [None]
  - NAUSEA [None]
  - SEPSIS [None]
  - VOMITING [None]
